FAERS Safety Report 15370030 (Version 1)
Quarter: 2018Q4

REPORT INFORMATION
  Report Type: Spontaneous
  Country: DE (occurrence: DE)
  Receive Date: 20180911
  Receipt Date: 20180911
  Transmission Date: 20190204
  Serious: Yes (Hospitalization)
  Sender: FDA-Public Use
  Company Number: DE-TORRENT-00009826

PATIENT
  Age: 63 Year
  Sex: Female
  Weight: 56 kg

DRUGS (10)
  1. RAMIPRIL 5 MG [Suspect]
     Active Substance: RAMIPRIL
     Indication: HYPERTENSION
     Dosage: UNKNOWN
     Route: 048
     Dates: start: 201401
  2. PANTOPRAZOLE [Concomitant]
     Active Substance: PANTOPRAZOLE
     Indication: PRODUCT USED FOR UNKNOWN INDICATION
     Dosage: AS NEEDED
     Route: 048
  3. IBANDRONSURE HEXAL 3 MG/3ML [Concomitant]
     Indication: PRODUCT USED FOR UNKNOWN INDICATION
     Dosage: EVERY 3 MONTH, LAST ONE IN JAN-2017
     Dates: end: 201701
  4. ESTRAMON PLASTER [Concomitant]
     Indication: OSTEOPOROSIS POSTMENOPAUSAL
     Dosage: ESTRAMON 25 G REPORTED IN LABORATORY LETTER FROM AUG-2016
     Route: 062
  5. CITALOPRAM [Suspect]
     Active Substance: CITALOPRAM HYDROBROMIDE
     Indication: PRODUCT USED FOR UNKNOWN INDICATION
     Dosage: UNKNOWN
     Route: 065
     Dates: start: 201309, end: 201507
  6. DEKRISTOL 20.000 [Concomitant]
     Indication: PRODUCT USED FOR UNKNOWN INDICATION
     Dosage: REPORTED IN LABORATORY LETTER FROM AUG-2016
  7. KOCHSALZTABLETTEN [Concomitant]
     Indication: PRODUCT USED FOR UNKNOWN INDICATION
     Dosage: 2 OR 3 TIMES DAILY, REPORTED IN LABORATORY LETTER FROM AUG-2016
     Route: 048
  8. NOCUTIL (DESMOPRESSIN ACETATE) [Suspect]
     Active Substance: DESMOPRESSIN ACETATE
     Indication: INAPPROPRIATE ANTIDIURETIC HORMONE SECRETION
     Dosage: 0.1-0.05-0.05, REPORTED IN LABORATORY LETTER FROM MAR-2017
     Route: 048
  9. HYDROCORTISONE. [Concomitant]
     Active Substance: HYDROCORTISONE
     Indication: GLUCOCORTICOID DEFICIENCY
     Dosage: 1.5 TABLETS DAILY (1-0.5-0)
     Route: 048
     Dates: start: 20140909
  10. SCHWEDENTABLETTEN [Concomitant]
     Indication: PRODUCT USED FOR UNKNOWN INDICATION
     Dosage: 2 TABLETS DAILY
     Route: 048

REACTIONS (13)
  - Dysgeusia [Unknown]
  - Muscular weakness [Unknown]
  - Abdominal discomfort [Recovered/Resolved]
  - Hyponatraemia [Recovering/Resolving]
  - Urticaria [Unknown]
  - Nausea [Not Recovered/Not Resolved]
  - Product prescribing error [Unknown]
  - Contusion [Recovering/Resolving]
  - Headache [Not Recovered/Not Resolved]
  - Hypertension [Unknown]
  - Syncope [Recovered/Resolved]
  - Urine output decreased [Unknown]
  - Hyperhidrosis [Unknown]

NARRATIVE: CASE EVENT DATE: 20150526
